FAERS Safety Report 16422892 (Version 1)
Quarter: 2019Q2

REPORT INFORMATION
  Report Type: Spontaneous
  Country: US (occurrence: US)
  Receive Date: 20190612
  Receipt Date: 20190612
  Transmission Date: 20190711
  Serious: No
  Sender: FDA-Public Use
  Company Number: US-SA-2019SA159110

PATIENT
  Sex: Female

DRUGS (1)
  1. DUPIXENT [Suspect]
     Active Substance: DUPILUMAB
     Dosage: 80 MG, QOW
     Route: 058
     Dates: start: 20190605

REACTIONS (3)
  - Fungal infection [Unknown]
  - Unevaluable event [Unknown]
  - Incorrect dose administered [Unknown]
